FAERS Safety Report 9467158 (Version 1)
Quarter: 2013Q3

REPORT INFORMATION
  Report Type: Spontaneous
  Country: US (occurrence: US)
  Receive Date: 20130820
  Receipt Date: 20130820
  Transmission Date: 20140515
  Serious: No
  Sender: FDA-Public Use
  Company Number: US-B.I. PHARMACEUTICALS,INC./RIDGEFIELD-2013-BI-24386BP

PATIENT
  Sex: Female

DRUGS (5)
  1. MICARDIS [Suspect]
     Dosage: 40 MG IN THE DAY AND 20 MG AT NIGHT FOR A TOTAL OF 60 MG PER DAY
  2. BETA BLOCKER [Concomitant]
  3. COREG [Concomitant]
  4. CARVEDILOL [Concomitant]
  5. DIOVAN [Concomitant]

REACTIONS (11)
  - Headache [Unknown]
  - Vision blurred [Unknown]
  - Dizziness [Unknown]
  - Dizziness [Unknown]
  - Lethargy [Unknown]
  - Nausea [Unknown]
  - Impaired driving ability [Unknown]
  - Blood pressure increased [Unknown]
  - Thyroid disorder [Unknown]
  - Quality of life decreased [Unknown]
  - Quality of life decreased [Unknown]
